FAERS Safety Report 7209235-6 (Version None)
Quarter: 2011Q1

REPORT INFORMATION
  Report Type: 
  Country: None (occurrence: None)
  Receive Date: 20110104
  Receipt Date: 20101228
  Transmission Date: 20110831
  Serious: Yes (Hospitalization)
  Sender: FDA-Public Use
  Company Number: A0891399A

PATIENT
  Age: 49 Year
  Sex: Female

DRUGS (6)
  1. DIAZEPAM [Concomitant]
  2. IRON SUPPLEMENT [Concomitant]
  3. FOLIC ACID [Concomitant]
  4. PAXIL [Suspect]
     Indication: DEPRESSION
     Dosage: 20MG PER DAY
     Route: 048
     Dates: start: 20020119
  5. SYNTHROID [Concomitant]
  6. NORTRIPTYLINE [Concomitant]

REACTIONS (12)
  - MENTAL DISORDER [None]
  - WITHDRAWAL SYNDROME [None]
  - FEELING JITTERY [None]
  - HALLUCINATION [None]
  - PALPITATIONS [None]
  - PARAESTHESIA [None]
  - THINKING ABNORMAL [None]
  - PRODUCT QUALITY ISSUE [None]
  - INSOMNIA [None]
  - MENTAL STATUS CHANGES [None]
  - PARANOIA [None]
  - CONFUSIONAL STATE [None]
